FAERS Safety Report 10206239 (Version 1)
Quarter: 2014Q2

REPORT INFORMATION
  Report Type: Spontaneous
  Country: FR (occurrence: FR)
  Receive Date: 20140530
  Receipt Date: 20140530
  Transmission Date: 20141212
  Serious: Yes (Hospitalization)
  Sender: FDA-Public Use
  Company Number: FR-ASTRAZENECA-2014SE36299

PATIENT
  Age: 21298 Day
  Sex: Female

DRUGS (8)
  1. MOPRAL [Suspect]
     Indication: HELICOBACTER INFECTION
     Route: 048
     Dates: start: 201403, end: 201403
  2. PYLERA [Suspect]
     Indication: HELICOBACTER INFECTION
     Route: 048
     Dates: start: 201403, end: 201403
  3. BIPERIDYS [Suspect]
     Indication: HELICOBACTER INFECTION
     Route: 048
     Dates: start: 201403, end: 201403
  4. DITROPAN [Concomitant]
  5. LYRICA [Concomitant]
  6. TRAMADOL [Concomitant]
  7. PARACETAMOL [Concomitant]
  8. KESTIN [Concomitant]

REACTIONS (3)
  - Ecchymosis [Recovered/Resolved]
  - Thrombocytopenia [Recovered/Resolved]
  - Cholestasis [Unknown]
